FAERS Safety Report 7287899-9 (Version None)
Quarter: 2011Q1

REPORT INFORMATION
  Report Type: 
  Country: None (occurrence: None)
  Receive Date: 20110211
  Receipt Date: 20110209
  Transmission Date: 20110831
  Serious: No
  Sender: FDA-Public Use
  Company Number: US-PFIZER INC-2011029218

PATIENT
  Sex: Female

DRUGS (2)
  1. PAMPRIN TAB [Suspect]
     Indication: MUSCLE SPASMS
     Dosage: UNK
  2. ADVIL [Suspect]
     Indication: MUSCLE SPASMS
     Dosage: UNK

REACTIONS (2)
  - DRUG INEFFECTIVE [None]
  - ABDOMINAL PAIN UPPER [None]
